FAERS Safety Report 8297932-3 (Version None)
Quarter: 2012Q2

REPORT INFORMATION
  Report Type: 
  Country: None (occurrence: None)
  Receive Date: 20120419
  Receipt Date: 20120410
  Transmission Date: 20120825
  Serious: Yes (Hospitalization)
  Sender: FDA-Public Use
  Company Number: US-SANOFI-AVENTIS-2012SA024967

PATIENT
  Age: 50 Year
  Sex: Male

DRUGS (4)
  1. DRONEDARONE HCL [Suspect]
     Indication: ATRIAL FIBRILLATION
     Route: 065
  2. DRONEDARONE HCL [Suspect]
     Dosage: RESTARTED
     Route: 065
  3. DRONEDARONE HCL [Suspect]
     Indication: ATRIAL FLUTTER
     Route: 065
  4. DRONEDARONE HCL [Suspect]
     Dosage: RESTARTED
     Route: 065

REACTIONS (6)
  - PALPITATIONS [None]
  - BUNDLE BRANCH BLOCK RIGHT [None]
  - ELECTROCARDIOGRAM QRS COMPLEX SHORTENED [None]
  - DYSPNOEA [None]
  - NAUSEA [None]
  - VENTRICULAR TACHYCARDIA [None]
